FAERS Safety Report 12105420 (Version 2)
Quarter: 2016Q2

REPORT INFORMATION
  Report Type: Spontaneous
  Country: JP (occurrence: JP)
  Receive Date: 20160223
  Receipt Date: 20160602
  Transmission Date: 20160815
  Serious: Yes (Hospitalization, Other)
  Sender: FDA-Public Use
  Company Number: PHHY2015JP167703

PATIENT
  Age: 96 Year
  Sex: Male

DRUGS (17)
  1. YOKUKANSAN [Suspect]
     Active Substance: HERBALS
     Indication: PRODUCT USED FOR UNKNOWN INDICATION
     Dosage: 7.5 G, QD
     Route: 048
     Dates: start: 20141114, end: 20151202
  2. RIVASTACH [Suspect]
     Active Substance: RIVASTIGMINE
     Dosage: PATCH 2.5 (CM2)
     Route: 062
     Dates: start: 20151211, end: 20151217
  3. MEMARY OD [Suspect]
     Active Substance: MEMANTINE HYDROCHLORIDE
     Dosage: 10 MG, QD
     Route: 048
     Dates: start: 20141122, end: 20141128
  4. MEMARY OD [Suspect]
     Active Substance: MEMANTINE HYDROCHLORIDE
     Dosage: 20 MG, QD
     Route: 048
     Dates: start: 20141206, end: 20160303
  5. MEMARY OD [Suspect]
     Active Substance: MEMANTINE HYDROCHLORIDE
     Dosage: 10 MG, QD
     Route: 048
     Dates: start: 20160304, end: 20160317
  6. MEMARY OD [Suspect]
     Active Substance: MEMANTINE HYDROCHLORIDE
     Dosage: 5 MG/DL, QD
     Route: 048
     Dates: start: 20141129, end: 20141205
  7. RIVASTACH [Suspect]
     Active Substance: RIVASTIGMINE
     Dosage: PATCH 10 (CM2)
     Route: 062
     Dates: start: 20151009, end: 20151105
  8. RIVASTACH [Suspect]
     Active Substance: RIVASTIGMINE
     Dosage: PATCH 5 (CM2)
     Route: 062
     Dates: start: 20151204, end: 20151210
  9. MEMARY OD [Suspect]
     Active Substance: MEMANTINE HYDROCHLORIDE
     Indication: PRODUCT USED FOR UNKNOWN INDICATION
     Dosage: 5 MG, QD
     Route: 048
     Dates: start: 20141114, end: 20141121
  10. MEMARY OD [Suspect]
     Active Substance: MEMANTINE HYDROCHLORIDE
     Dosage: 5 MG, QD
     Route: 048
     Dates: start: 20160325, end: 20160331
  11. RIVASTACH [Suspect]
     Active Substance: RIVASTIGMINE
     Dosage: PATCH 5 (CM2)
     Route: 062
     Dates: start: 20150814, end: 20150910
  12. RIVASTACH [Suspect]
     Active Substance: RIVASTIGMINE
     Dosage: PATCH 7.5 (CM2)
     Route: 062
     Dates: start: 20150911, end: 20151008
  13. RIVASTACH [Suspect]
     Active Substance: RIVASTIGMINE
     Dosage: PATCH 7.5 (CM2)
     Route: 062
     Dates: start: 20151106, end: 20151203
  14. MEMARY OD [Suspect]
     Active Substance: MEMANTINE HYDROCHLORIDE
     Dosage: 10 MG, QD
     Route: 048
     Dates: start: 20160318, end: 20160324
  15. BLOPRESS [Concomitant]
     Active Substance: CANDESARTAN CILEXETIL
     Indication: PRODUCT USED FOR UNKNOWN INDICATION
     Dosage: 4 MG, QD
     Route: 065
     Dates: start: 20140516
  16. BLOPRESS [Concomitant]
     Active Substance: CANDESARTAN CILEXETIL
     Dosage: 2 MG, BID
     Route: 065
  17. RIVASTACH [Suspect]
     Active Substance: RIVASTIGMINE
     Indication: DEMENTIA ALZHEIMER^S TYPE
     Dosage: PATCH 2.5 (CM2)
     Route: 062
     Dates: start: 20150717, end: 20150813

REACTIONS (6)
  - Subdural haematoma [Unknown]
  - Application site pruritus [Unknown]
  - Parkinsonism [Recovered/Resolved]
  - Muscular weakness [Unknown]
  - Nausea [Unknown]
  - Somnolence [Unknown]

NARRATIVE: CASE EVENT DATE: 2015
